FAERS Safety Report 7389063-1 (Version None)
Quarter: 2011Q2

REPORT INFORMATION
  Report Type: 
  Country: None (occurrence: None)
  Receive Date: 20110401
  Receipt Date: 20110324
  Transmission Date: 20111010
  Serious: Yes (Death, Hospitalization, Other)
  Sender: FDA-Public Use
  Company Number: JP-ROCHE-691014

PATIENT
  Sex: Female
  Weight: 43 kg

DRUGS (8)
  1. AVASTIN [Suspect]
     Indication: LUNG ADENOCARCINOMA
     Route: 041
     Dates: start: 20100219, end: 20100219
  2. AVASTIN [Suspect]
     Route: 041
     Dates: start: 20100319, end: 20100319
  3. CARBOPLATIN [Suspect]
     Indication: LUNG ADENOCARCINOMA
     Route: 041
     Dates: start: 20100219, end: 20100219
  4. ALIMTA [Suspect]
     Indication: LUNG ADENOCARCINOMA
     Dosage: DRUG NAME REPORTED AS ALIMTA( PEMETREXED SODIUM HYDRATE)
     Route: 041
     Dates: start: 20100219, end: 20100219
  5. AVASTIN [Suspect]
     Route: 041
     Dates: start: 20100423, end: 20100423
  6. CARBOPLATIN [Suspect]
     Route: 041
     Dates: start: 20100326, end: 20100326
  7. ALIMTA [Suspect]
     Route: 041
     Dates: start: 20100514, end: 20100514
  8. ALIMTA [Suspect]
     Route: 041
     Dates: start: 20100326, end: 20100326

REACTIONS (12)
  - ALANINE AMINOTRANSFERASE INCREASED [None]
  - PANCYTOPENIA [None]
  - INFECTION [None]
  - WHITE BLOOD CELL COUNT DECREASED [None]
  - BLOOD ALKALINE PHOSPHATASE INCREASED [None]
  - NEUTROPHIL COUNT DECREASED [None]
  - BLOOD ALBUMIN DECREASED [None]
  - GAMMA-GLUTAMYLTRANSFERASE INCREASED [None]
  - BRONCHIAL FISTULA [None]
  - BLOOD PRESSURE DECREASED [None]
  - PLATELET COUNT DECREASED [None]
  - PYOTHORAX [None]
